FAERS Safety Report 13551030 (Version 1)
Quarter: 2017Q2

REPORT INFORMATION
  Report Type: Spontaneous
  Country: JP (occurrence: JP)
  Receive Date: 20170516
  Receipt Date: 20170516
  Transmission Date: 20170830
  Serious: Yes (Other)
  Sender: FDA-Public Use
  Company Number: JP-PFIZER INC-2017213521

PATIENT

DRUGS (1)
  1. RHEUMATREX [Suspect]
     Active Substance: METHOTREXATE SODIUM
     Dosage: 4 CAPSULES 2X/DAY ON SUNDAY AND 1 CAPSULE ON MONDAY MORNING
     Route: 048
     Dates: end: 20170515

REACTIONS (1)
  - Polyp [Unknown]

NARRATIVE: CASE EVENT DATE: 20170515
